FAERS Safety Report 9776910 (Version 2)
Quarter: 2014Q1

REPORT INFORMATION
  Report Type: Spontaneous
  Country: US (occurrence: US)
  Receive Date: 20131221
  Receipt Date: 20140121
  Transmission Date: 20141002
  Serious: No
  Sender: FDA-Public Use
  Company Number: US-B.I. PHARMACEUTICALS,INC./RIDGEFIELD-2013-BI-41344BP

PATIENT
  Sex: Male
  Weight: 117.93 kg

DRUGS (1)
  1. CATAPRES TTS [Suspect]
     Indication: PRODUCT USED FOR UNKNOWN INDICATION
     Dosage: STRENGTH: 5.0 MG (0.2 MG / DAY); DAILY DOSE: 0.4  MG/DAY
     Route: 061

REACTIONS (1)
  - Prescribed overdose [Not Recovered/Not Resolved]
